FAERS Safety Report 5231334-9 (Version None)
Quarter: 2007Q1

REPORT INFORMATION
  Report Type: 
  Country: None (occurrence: None)
  Receive Date: 20070206
  Receipt Date: 20070126
  Transmission Date: 20070707
  Serious: Yes (Hospitalization, Disabling, Congenital Anomaly, Other)
  Sender: FDA-Public Use
  Company Number: HQWYE237909MAR06

PATIENT
  Sex: Female

DRUGS (6)
  1. EFFEXOR XR [Suspect]
     Route: 064
     Dates: start: 20000113, end: 20000101
  2. EFFEXOR XR [Suspect]
     Route: 064
     Dates: start: 20000101, end: 20000301
  3. EFFEXOR XR [Suspect]
     Route: 064
     Dates: start: 20000701, end: 20000801
  4. EFFEXOR XR [Suspect]
     Route: 064
     Dates: start: 20000801
  5. TYLENOL [Concomitant]
     Indication: MIGRAINE
     Dosage: AS NEEDED
     Route: 064
  6. XANAX [Concomitant]
     Dosage: AS NEEDED
     Route: 064

REACTIONS (4)
  - CEREBRAL PALSY [None]
  - CONGENITAL BRAIN DAMAGE [None]
  - CONVULSION NEONATAL [None]
  - DRUG EXPOSURE DURING PREGNANCY [None]
